FAERS Safety Report 5156220-4 (Version None)
Quarter: 2006Q4

REPORT INFORMATION
  Report Type: 
  Country: None (occurrence: None)
  Receive Date: 20061122
  Receipt Date: 20061110
  Transmission Date: 20070319
  Serious: Yes (Hospitalization, Other)
  Sender: FDA-Public Use
  Company Number: US-JNJFOC-20061000242

PATIENT
  Sex: Female
  Weight: 91.17 kg

DRUGS (2)
  1. ORTHO EVRA [Suspect]
     Indication: CONTRACEPTION
     Route: 062
  2. ADVIL [Concomitant]
     Indication: PAIN
     Route: 048

REACTIONS (2)
  - RENAL EMBOLISM [None]
  - RENAL INFARCT [None]
